FAERS Safety Report 11381187 (Version 1)
Quarter: 2015Q3

REPORT INFORMATION
  Report Type: Spontaneous
  Country: TR (occurrence: TR)
  Receive Date: 20150814
  Receipt Date: 20150814
  Transmission Date: 20151125
  Serious: Yes (Hospitalization, Other)
  Sender: FDA-Public Use
  Company Number: TR-ROXANE LABORATORIES, INC.-2015-RO-01325RO

PATIENT
  Age: 74 Year
  Sex: Male

DRUGS (6)
  1. TRANDOLAPRIL. [Concomitant]
     Active Substance: TRANDOLAPRIL
     Indication: CARDIAC FAILURE
     Dosage: 0.5 MG
     Route: 065
  2. SPIROLACTONE/HYDROCHLOROTHIAZIDE [Concomitant]
     Indication: CARDIAC FAILURE
     Route: 065
  3. LEVETIRACETAM. [Suspect]
     Active Substance: LEVETIRACETAM
     Indication: EPILEPSY
     Dosage: 1000 MG
     Route: 065
  4. FUROSEMIDE. [Concomitant]
     Active Substance: FUROSEMIDE
     Indication: CARDIAC FAILURE
     Dosage: 40 MG
     Route: 065
  5. CARVEDILOL. [Concomitant]
     Active Substance: CARVEDILOL
     Indication: CARDIAC FAILURE
     Dosage: 15 MG
     Route: 065
  6. WARFARIN [Concomitant]
     Active Substance: WARFARIN
     Route: 065

REACTIONS (3)
  - Inappropriate antidiuretic hormone secretion [Recovered/Resolved]
  - Hyponatraemia [Recovered/Resolved]
  - Cardiac failure [Recovered/Resolved]
